FAERS Safety Report 21083435 (Version 2)
Quarter: 2022Q3

REPORT INFORMATION
  Report Type: Report from Study
  Country: US (occurrence: None)
  Receive Date: 20220714
  Receipt Date: 20220819
  Transmission Date: 20221027
  Serious: Yes (Other)
  Sender: FDA-Public Use
  Company Number: 2022A247818

PATIENT
  Sex: Female

DRUGS (2)
  1. LYNPARZA [Interacting]
     Active Substance: OLAPARIB
     Indication: Ovarian cancer
     Route: 048
     Dates: start: 20220530, end: 20220623
  2. DOXYCYCLINE [Interacting]
     Active Substance: DOXYCYCLINE
     Route: 065

REACTIONS (13)
  - Drug interaction [Unknown]
  - Toxicity to various agents [Unknown]
  - Lyme disease [Unknown]
  - Nephropathy [Unknown]
  - Illness [Unknown]
  - Skin lesion [Recovering/Resolving]
  - Mental impairment [Unknown]
  - Movement disorder [Unknown]
  - Fatigue [Unknown]
  - Asthenia [Unknown]
  - Lividity [Unknown]
  - Haemoglobin decreased [Unknown]
  - Inhibitory drug interaction [Unknown]
